FAERS Safety Report 6947447-7 (Version None)
Quarter: 2010Q3

REPORT INFORMATION
  Report Type: 
  Country: None (occurrence: None)
  Receive Date: 20100827
  Receipt Date: 20100820
  Transmission Date: 20110219
  Serious: Yes (Death, Other)
  Sender: FDA-Public Use
  Company Number: US-AMGEN-QUU393504

PATIENT
  Sex: Male

DRUGS (2)
  1. NPLATE [Suspect]
     Indication: IDIOPATHIC THROMBOCYTOPENIC PURPURA
     Dates: start: 20081117, end: 20090325
  2. CORTICOSTEROIDS [Concomitant]
     Dates: start: 20060801

REACTIONS (6)
  - CARDIAC FAILURE [None]
  - CHRONIC LYMPHOCYTIC LEUKAEMIA [None]
  - DEVICE RELATED INFECTION [None]
  - SEPSIS [None]
  - THERAPEUTIC RESPONSE DECREASED [None]
  - THROMBOCYTOPENIA [None]
